FAERS Safety Report 20751251 (Version 2)
Quarter: 2022Q2

REPORT INFORMATION
  Report Type: Spontaneous
  Country: LV (occurrence: LV)
  Receive Date: 20220426
  Receipt Date: 20220506
  Transmission Date: 20220720
  Serious: Yes (Hospitalization, Other)
  Sender: FDA-Public Use
  Company Number: LV-009507513-2204LVA008170

PATIENT
  Age: 44 Year
  Sex: Female

DRUGS (1)
  1. PEMBROLIZUMAB [Suspect]
     Active Substance: PEMBROLIZUMAB
     Indication: Metastatic malignant melanoma
     Dosage: 5 CYCLES

REACTIONS (4)
  - Malignant neoplasm progression [Unknown]
  - Cardiac neoplasm unspecified [Unknown]
  - Haemorrhage [Unknown]
  - Anaemia [Unknown]
